FAERS Safety Report 4673806-1 (Version None)
Quarter: 2005Q2

REPORT INFORMATION
  Report Type: 
  Country: None (occurrence: None)
  Receive Date: 20050524
  Receipt Date: 20050519
  Transmission Date: 20051028
  Serious: Yes (Hospitalization, Other)
  Sender: FDA-Public Use
  Company Number: ITWYE601720APR05

PATIENT
  Age: 40 Year
  Sex: Male

DRUGS (3)
  1. SIROLIMUS (SIROLIMUS, SOLUTION) [Suspect]
     Indication: PROPHYLAXIS AGAINST TRANSPLANT REJECTION
     Dosage: 10 MG 1X PER 1 DAY, ORAL
     Route: 048
     Dates: start: 20050331, end: 20050428
  2. CORTICOSTEROIDS (CORTICOSTEROIDS, , 0) [Suspect]
     Indication: PROPHYLAXIS AGAINST TRANSPLANT REJECTION
  3. MYCOPHENOLATE MOFETIL (MYCOPHENOLATE MOFETIL, , 0) [Suspect]
     Indication: PROPHYLAXIS AGAINST TRANSPLANT REJECTION

REACTIONS (2)
  - KIDNEY TRANSPLANT REJECTION [None]
  - URETERIC DILATATION [None]
